FAERS Safety Report 9958023 (Version 1)
Quarter: 2014Q1

REPORT INFORMATION
  Report Type: Report from Study
  Country: US (occurrence: US)
  Receive Date: 20140304
  Receipt Date: 20140304
  Transmission Date: 20141002
  Serious: No
  Sender: FDA-Public Use
  Company Number: US-ABBVIE-13P-163-1092691-00

PATIENT
  Sex: Female

DRUGS (2)
  1. HUMIRA [Suspect]
     Indication: RHEUMATOID ARTHRITIS
     Route: 058
     Dates: start: 20130327
  2. HUMIRA [Suspect]
     Route: 058

REACTIONS (3)
  - Inappropriate schedule of drug administration [Unknown]
  - Injection site reaction [Unknown]
  - Injection site pain [Unknown]
